FAERS Safety Report 11573012 (Version 1)
Quarter: 2015Q3

REPORT INFORMATION
  Report Type: Spontaneous
  Country: US (occurrence: US)
  Receive Date: 20150916
  Receipt Date: 20150916
  Transmission Date: 20151125
  Serious: No
  Sender: FDA-Public Use
  Company Number: US-ELI_LILLY_AND_COMPANY-US200910006414

PATIENT
  Age: 70 Year
  Sex: Female

DRUGS (1)
  1. FORTEO [Suspect]
     Active Substance: TERIPARATIDE
     Dosage: UNK, UNK
     Dates: start: 200804

REACTIONS (8)
  - Viral infection [Unknown]
  - Disturbance in attention [Unknown]
  - Incorrect product storage [Unknown]
  - Dysphonia [Unknown]
  - Drug dose omission [Unknown]
  - Malaise [Unknown]
  - Nasal disorder [Unknown]
  - Influenza [Unknown]

NARRATIVE: CASE EVENT DATE: 200909
